FAERS Safety Report 4639619-1 (Version None)
Quarter: 2005Q2

REPORT INFORMATION
  Report Type: 
  Country: None (occurrence: None)
  Receive Date: 20050414
  Receipt Date: 20050404
  Transmission Date: 20051028
  Serious: Yes (Hospitalization, Other)
  Sender: FDA-Public Use
  Company Number: CHPA2003US02320

PATIENT
  Age: 55 Year
  Sex: Male
  Weight: 86.2 kg

DRUGS (45)
  1. DULCOLAX [Suspect]
     Dosage: ORAL
     Route: 048
  2. FEEN-A-MIN(PHENOLPHTHALEIN) [Suspect]
     Dosage: ORAL
     Route: 048
  3. SENOKOT [Suspect]
     Dosage: ORAL
     Route: 048
  4. REZULIN [Concomitant]
  5. ZOLOFT [Concomitant]
  6. NOVOLIN 70/30 [Concomitant]
  7. TEGRETOL [Concomitant]
  8. XANAX [Concomitant]
  9. NORTRIPTYLINE HCL [Concomitant]
  10. PROZAC [Concomitant]
  11. NEURONTIN [Concomitant]
  12. SYNTHROID [Concomitant]
  13. PRILOSEC [Concomitant]
  14. CELEXA [Concomitant]
  15. ULTRAM [Concomitant]
  16. DITROPAN XL [Concomitant]
  17. LOTRIMIN [Concomitant]
  18. MUSCLE RELAXANTS (NO INGREDIENTS/SUBSTANCES) [Concomitant]
  19. HUMULIN N [Concomitant]
  20. ACETYLSALICYLIC ACID SRT [Concomitant]
  21. PEPCID [Concomitant]
  22. VIOXX [Concomitant]
  23. VALIUM [Concomitant]
  24. LORAZEPAM [Concomitant]
  25. MACRODANTIN [Concomitant]
  26. EFFEXOR [Concomitant]
  27. AVELOX [Concomitant]
  28. ACTOS (PIOGLITAZONE, PIOGLITAZONE HYDROCHLORIDE) [Concomitant]
  29. DARVOCET-N (DEXTROPROPOXYPHENE NAPSILATE, PARACETAMOL) [Concomitant]
  30. LACTULOSE [Concomitant]
  31. TUSSIN LIQUID (DEXTROMETHORPHAN HYDROBROMIDE) [Concomitant]
  32. GLUCOPHAGE [Concomitant]
  33. COLACE (DOCUSATE SODIUM) [Concomitant]
  34. TEQUIN [Concomitant]
  35. WELLBUTRIN [Concomitant]
  36. PAXIL [Concomitant]
  37. ORUVAIL [Concomitant]
  38. PAMELOR [Concomitant]
  39. TAGAMET [Concomitant]
  40. DEXEDRINE   MEDEVA (DEXAMFETAMINE SULFATE) [Concomitant]
  41. VITAMIN B6 [Concomitant]
  42. FIORICET [Concomitant]
  43. NAPROSYN [Concomitant]
  44. GLYNASE [Concomitant]
  45. URISED (ATROPINE SULFATE, BENZOIC ACID, GELSEMIUM, GELSEMIUM SEMPERVIR [Concomitant]

REACTIONS (39)
  - ABDOMINAL PAIN [None]
  - ABDOMINAL PAIN UPPER [None]
  - ANGINA PECTORIS [None]
  - ASTHENIA [None]
  - BENIGN MESOTHELIOMA [None]
  - CEREBROVASCULAR ACCIDENT [None]
  - CHOLECYSTITIS [None]
  - CHOLELITHIASIS [None]
  - CHROMATURIA [None]
  - COLONIC POLYP [None]
  - CONSTIPATION [None]
  - DIARRHOEA [None]
  - DIVERTICULUM [None]
  - DRUG DEPENDENCE [None]
  - DYSPEPSIA [None]
  - DYSPHAGIA [None]
  - EMOTIONAL DISORDER [None]
  - FEELING ABNORMAL [None]
  - GASTRIC CANCER [None]
  - GASTRIC DISORDER [None]
  - GASTRIC POLYPS [None]
  - GASTRITIS [None]
  - GASTROINTESTINAL HAEMORRHAGE [None]
  - HAEMORRHAGE URINARY TRACT [None]
  - HAEMORRHOIDS [None]
  - HEMIPLEGIA [None]
  - HEPATITIS [None]
  - HIATUS HERNIA [None]
  - HYPOAESTHESIA [None]
  - INJURY [None]
  - MUSCLE SPASMS [None]
  - NIGHT CRAMPS [None]
  - OESOPHAGITIS [None]
  - POLYP COLORECTAL [None]
  - PROSTATE CANCER [None]
  - SOMNOLENCE [None]
  - SYNCOPE VASOVAGAL [None]
  - URINARY INCONTINENCE [None]
  - URINARY TRACT INFECTION [None]
